FAERS Safety Report 11106289 (Version 1)
Quarter: 2015Q2

REPORT INFORMATION
  Report Type: Report from Study
  Country: US (occurrence: None)
  Receive Date: 20150511
  Receipt Date: 20150511
  Transmission Date: 20150821
  Serious: Yes (Other)
  Sender: FDA-Public Use
  Company Number: US-2015CRT000411

PATIENT
  Age: 52 Year
  Sex: Male
  Weight: 124.7 kg

DRUGS (8)
  1. KORLYM [Suspect]
     Active Substance: MIFEPRISTONE
     Indication: CUSHING^S SYNDROME
     Route: 048
     Dates: start: 201309, end: 201502
  2. OXYCONTIN [Concomitant]
     Active Substance: OXYCODONE HYDROCHLORIDE
  3. KLONOPIN [Concomitant]
     Active Substance: CLONAZEPAM
  4. ANTIHYPERTENSIVES [Concomitant]
     Active Substance: UNSPECIFIED INGREDIENT
  5. VICTOZA [Concomitant]
     Active Substance: LIRAGLUTIDE
  6. MORPHINE [Concomitant]
     Active Substance: MORPHINE
  7. DILAUDID [Concomitant]
     Active Substance: HYDROMORPHONE HYDROCHLORIDE
  8. BUSPAR (BUSPIRONE HYDROCHLORIDE) [Concomitant]

REACTIONS (6)
  - Tooth discolouration [None]
  - Tooth loss [None]
  - Tooth resorption [None]
  - Gingival recession [None]
  - Bone disorder [None]
  - Tooth fracture [None]

NARRATIVE: CASE EVENT DATE: 2014
